FAERS Safety Report 9571019 (Version 2)
Quarter: 2013Q4

REPORT INFORMATION
  Report Type: Spontaneous
  Country: US (occurrence: US)
  Receive Date: 20131001
  Receipt Date: 20131001
  Transmission Date: 20140711
  Serious: Yes (Other)
  Sender: FDA-Public Use
  Company Number: US-ROCHE-1281984

PATIENT
  Sex: Female

DRUGS (6)
  1. XOLAIR [Suspect]
     Indication: ASTHMA
     Route: 058
     Dates: start: 20130923
  2. ALBUTEROL [Concomitant]
     Indication: ASTHMA
     Dosage: 2 PUFF AS NEEDED
     Route: 065
  3. PREDNISONE [Concomitant]
  4. PRILOSEC [Concomitant]
  5. SINGULAIR [Concomitant]
  6. ALLEGRA [Concomitant]

REACTIONS (4)
  - Hypertension [Recovered/Resolved]
  - Anxiety [Unknown]
  - Palpitations [Recovered/Resolved]
  - Heart rate increased [Unknown]
